FAERS Safety Report 9951090 (Version 2)
Quarter: 2014Q2

REPORT INFORMATION
  Report Type: Report from Study
  Country: US (occurrence: US)
  Receive Date: 20140304
  Receipt Date: 20140410
  Transmission Date: 20141212
  Serious: Yes (Other)
  Sender: FDA-Public Use
  Company Number: PHEH2014US004306

PATIENT
  Age: 66 Year
  Sex: Female
  Weight: 80.73 kg

DRUGS (11)
  1. TOBI PODHALER [Suspect]
     Indication: BRONCHIECTASIS
     Dosage: 4 DF, QD (ONCE A DAY FOR 3 WEEKS THEN OFF DRUG FOR 3 WEEKS)
     Route: 055
     Dates: start: 201401
  2. TOBI PODHALER [Suspect]
     Indication: PSEUDOMONAS INFECTION
  3. TOBI PODHALER [Suspect]
     Indication: PNEUMONIA
  4. ZITHROMAX [Concomitant]
     Dosage: 1 DF, ( 1 TAB MON, WED, FRI)
     Route: 048
  5. ALBUTEROL [Concomitant]
     Dosage: 2 DF, (2 PUFF) PRN
     Route: 055
  6. AMITRIPTYLINE [Concomitant]
     Dosage: 1 DF, BID
     Route: 048
  7. PRAMIPEXOLE [Concomitant]
     Dosage: 1 DF, (0.25 + 0.5 QD EACH)
     Route: 048
  8. LYRICA [Concomitant]
     Dosage: 3 DF, DAILY
     Route: 048
  9. CYMBALTA [Concomitant]
     Dosage: 90 MG, (30 MG +60 MG 1 TAB EACH DAILY)
     Route: 048
  10. LEVOTHYROXINE [Concomitant]
     Dosage: 25 UG, DAILY
     Route: 048
  11. NEXIAM [Concomitant]
     Dosage: 40 MG, DAILY
     Route: 048

REACTIONS (3)
  - Fall [Unknown]
  - Upper limb fracture [Unknown]
  - Pseudomonas infection [Unknown]
